FAERS Safety Report 25567512 (Version 1)
Quarter: 2025Q3

REPORT INFORMATION
  Report Type: Spontaneous
  Country: US (occurrence: US)
  Receive Date: 20250716
  Receipt Date: 20250716
  Transmission Date: 20251020
  Serious: No
  Sender: ALNYLAM PHARMACEUTICALS
  Company Number: US-ALNYLAM PHARMACEUTICALS, INC.-ALN-2025-004196

PATIENT

DRUGS (2)
  1. GIVLAARI [Suspect]
     Active Substance: GIVOSIRAN SODIUM
     Indication: Product used for unknown indication
     Route: 065
  2. GIVLAARI [Suspect]
     Active Substance: GIVOSIRAN SODIUM
     Route: 065

REACTIONS (6)
  - Injection site hypersensitivity [Unknown]
  - Investigation abnormal [Unknown]
  - Liver function test increased [Unknown]
  - Weight increased [Unknown]
  - Rash [Unknown]
  - Ill-defined disorder [Unknown]
